FAERS Safety Report 6690631-0 (Version None)
Quarter: 2010Q2

REPORT INFORMATION
  Report Type: 
  Country: None (occurrence: None)
  Receive Date: 20100421
  Receipt Date: 20100407
  Transmission Date: 20101027
  Serious: Yes (Other)
  Sender: FDA-Public Use
  Company Number: BR-GENENTECH-300169

PATIENT
  Sex: Female
  Weight: 58 kg

DRUGS (5)
  1. RITUXIMAB [Suspect]
     Indication: RHEUMATOID ARTHRITIS
     Dosage: UNK
     Route: 042
     Dates: start: 20080101, end: 20080101
  2. RITUXIMAB [Suspect]
     Dosage: UNK
     Route: 042
     Dates: start: 20090101, end: 20091101
  3. RITUXIMAB [Suspect]
     Dosage: UNK
     Route: 042
     Dates: start: 20091201, end: 20100101
  4. ARAVA [Concomitant]
     Indication: RHEUMATOID ARTHRITIS
     Dosage: UNK
     Dates: start: 20090101
  5. METICORTEN [Concomitant]
     Indication: RHEUMATOID ARTHRITIS
     Dosage: UNK
     Dates: start: 20030101

REACTIONS (4)
  - ABORTION [None]
  - DRUG EXPOSURE DURING PREGNANCY [None]
  - HAEMORRHAGE [None]
  - RETAINED PRODUCTS OF CONCEPTION [None]
